FAERS Safety Report 4456409-3 (Version None)
Quarter: 2004Q3

REPORT INFORMATION
  Report Type: 
  Country: None (occurrence: None)
  Receive Date: 20040902
  Receipt Date: 20040511
  Transmission Date: 20050211
  Serious: No
  Sender: FDA-Public Use
  Company Number: 200413524BWH

PATIENT
  Age: 71 Year
  Sex: Male

DRUGS (11)
  1. LEVITRA [Suspect]
     Indication: ERECTILE DYSFUNCTION
     Dosage: 10 MG, TOTAL DAILY, ORAL
     Route: 048
     Dates: start: 20040201
  2. VIAGRA [Concomitant]
  3. PRAVACHOL [Concomitant]
  4. PREVACID [Concomitant]
  5. TERAZOSIN HCL [Concomitant]
  6. NIFEDIPINE [Concomitant]
  7. TOPROL-XL [Concomitant]
  8. AMITRIPTYLINE HCL [Concomitant]
  9. INDOMETHACIN [Concomitant]
  10. ASPIRIN [Concomitant]
  11. VITAMIN E [Concomitant]

REACTIONS (1)
  - ERECTILE DYSFUNCTION [None]
